FAERS Safety Report 4592872-5 (Version None)
Quarter: 2005Q1

REPORT INFORMATION
  Report Type: 
  Country: None (occurrence: None)
  Receive Date: 20050228
  Receipt Date: 20050221
  Transmission Date: 20050727
  Serious: Yes (Other)
  Sender: FDA-Public Use
  Company Number: GB-ROCHE-396110

PATIENT
  Age: 53 Year
  Sex: Female

DRUGS (1)
  1. TAMIFLU [Suspect]
     Route: 048
     Dates: start: 20050128, end: 20050203

REACTIONS (3)
  - BLOOD URINE PRESENT [None]
  - PROTEINURIA [None]
  - URINE ODOUR ABNORMAL [None]
